FAERS Safety Report 9019683 (Version 1)
Quarter: 2013Q1

REPORT INFORMATION
  Report Type: Report from Study
  Country: US (occurrence: US)
  Receive Date: 20130118
  Receipt Date: 20130118
  Transmission Date: 20140127
  Serious: Yes (Hospitalization)
  Sender: FDA-Public Use
  Company Number: US-ROCHE-1179506

PATIENT
  Sex: Female
  Weight: 81.72 kg

DRUGS (3)
  1. BEVACIZUMAB [Suspect]
     Indication: COLORECTAL CANCER METASTATIC
     Route: 042
     Dates: start: 201010, end: 201101
  2. BEVACIZUMAB [Suspect]
     Route: 042
     Dates: start: 201108
  3. CAPECITABINE [Suspect]
     Indication: COLORECTAL CANCER METASTATIC
     Route: 048
     Dates: start: 201108

REACTIONS (6)
  - Vaginal fistula [Recovered/Resolved]
  - Fatigue [Not Recovered/Not Resolved]
  - Skin exfoliation [Not Recovered/Not Resolved]
  - Blister [Recovered/Resolved]
  - Impaired healing [Not Recovered/Not Resolved]
  - Skin exfoliation [Recovering/Resolving]
